FAERS Safety Report 13871346 (Version 3)
Quarter: 2017Q3

REPORT INFORMATION
  Report Type: Report from Study
  Country: CN (occurrence: CN)
  Receive Date: 20170816
  Receipt Date: 20170922
  Transmission Date: 20171127
  Serious: Yes (Hospitalization, Other)
  Sender: FDA-Public Use
  Company Number: CN-BAYER-2017-150750

PATIENT
  Age: 63 Year
  Sex: Male
  Weight: 65 kg

DRUGS (1)
  1. STIVARGA [Suspect]
     Active Substance: REGORAFENIB
     Indication: COLORECTAL CANCER
     Dosage: 160 MG, QD
     Route: 048
     Dates: start: 20170707

REACTIONS (26)
  - Weight decreased [None]
  - Palmar-plantar erythrodysaesthesia syndrome [None]
  - Abdominal adhesions [None]
  - Constipation [None]
  - Headache [None]
  - Skin exfoliation [None]
  - Gastrointestinal pain [None]
  - Dysuria [None]
  - Hypoaesthesia oral [None]
  - Gastric dilatation [None]
  - Erythema [None]
  - Muscular weakness [None]
  - Abdominal pain [Recovering/Resolving]
  - Dizziness [None]
  - Movement disorder [None]
  - Fall [None]
  - Abdominal pain upper [None]
  - Pain [None]
  - Fatigue [None]
  - Hypertension [None]
  - Faeces hard [None]
  - Blister [None]
  - Musculoskeletal disorder [None]
  - Abdominal pain [None]
  - Retching [None]
  - Asthenia [None]

NARRATIVE: CASE EVENT DATE: 20170815
